FAERS Safety Report 5099304-1 (Version None)
Quarter: 2006Q3

REPORT INFORMATION
  Report Type: 
  Country: None (occurrence: None)
  Receive Date: 20060728
  Receipt Date: 20060426
  Transmission Date: 20061208
  Serious: No
  Sender: FDA-Public Use
  Company Number: COT_0514_2006

PATIENT
  Age: 14 Year
  Sex: Female
  Weight: 51 kg

DRUGS (9)
  1. VENTAVIS [Suspect]
     Indication: PULMONARY HYPERTENSION
     Dosage: 2.5 MCG ONCE IH
     Dates: start: 20060426, end: 20060426
  2. VENTAVIS [Suspect]
     Indication: PULMONARY HYPERTENSION
     Dosage: 5 MCG ONCE IH
     Dates: start: 20060426, end: 20060426
  3. TOPRAMAX [Concomitant]
  4. ZOLOFT [Concomitant]
  5. COUMADIN [Concomitant]
  6. DIGOXIN [Concomitant]
  7. ASPIRIN [Concomitant]
  8. LASIX [Concomitant]
  9. PREVACID [Concomitant]

REACTIONS (5)
  - COUGH [None]
  - DRY THROAT [None]
  - FLUSHING [None]
  - HEADACHE [None]
  - PHARYNGOLARYNGEAL PAIN [None]
